FAERS Safety Report 5086764-5 (Version None)
Quarter: 2006Q3

REPORT INFORMATION
  Report Type: 
  Country: None (occurrence: None)
  Receive Date: 20060823
  Receipt Date: 20060808
  Transmission Date: 20061208
  Serious: Yes (Other)
  Sender: FDA-Public Use
  Company Number: 2006AC01458

PATIENT
  Age: 29 Year
  Sex: Female
  Weight: 98.2 kg

DRUGS (14)
  1. BUPIVACAINE [Suspect]
     Indication: EPIDURAL ANAESTHESIA
     Route: 008
  2. BUPIVACAINE [Suspect]
     Dosage: CONTINUOUS INFUSION, 14ML/H,  FROM 17:55 TO 18:53
     Route: 008
  3. LIDOCAINE [Suspect]
     Indication: EPIDURAL ANAESTHESIA
     Dosage: WITHOUT EPINEPHRINE
     Route: 008
  4. LIDOCAINE [Suspect]
     Dosage: WITH EPINEPHRINE
     Route: 008
  5. LIDOCAINE [Suspect]
     Dosage: WITHOUT EPINEPHRINE
     Route: 008
  6. FENTANYL [Suspect]
     Indication: EPIDURAL ANAESTHESIA
     Route: 008
  7. FENTANYL [Suspect]
     Dosage: CONTINUOUS INFUSION, 14ML/H,  FROM 17:55 TO 18:53
     Route: 008
  8. SODIUM CHLORIDE [Suspect]
     Indication: EPIDURAL ANAESTHESIA
     Route: 008
  9. SODIUM BICARBONATE [Suspect]
     Route: 008
  10. MIDAZOLAM [Concomitant]
     Route: 042
  11. MULTIPLE ELECTROLYTES [Concomitant]
     Route: 042
  12. MULTIPLE ELECTROLYTES [Concomitant]
     Dosage: WITH 35 UNITS OXYTOCIN
     Route: 042
  13. NITROGLYCERIN [Concomitant]
     Indication: UTERINE ATONY
     Dosage: TWO METERED DOSES
     Route: 048
  14. OXYTOCIN [Concomitant]
     Route: 042

REACTIONS (4)
  - DRUG EXPOSURE DURING PREGNANCY [None]
  - HYPOTENSION [None]
  - MONOPLEGIA [None]
  - WRONG TECHNIQUE IN DRUG USAGE PROCESS [None]
